FAERS Safety Report 10274617 (Version 2)
Quarter: 2014Q3

REPORT INFORMATION
  Report Type: Report from Study
  Country: BR (occurrence: BR)
  Receive Date: 20140702
  Receipt Date: 20140930
  Transmission Date: 20150326
  Serious: Yes (Life-Threatening, Hospitalization, Other)
  Sender: FDA-Public Use
  Company Number: PHHY2014BR081519

PATIENT
  Age: 68 Year
  Sex: Female
  Weight: 60 kg

DRUGS (8)
  1. ATROVENT [Suspect]
     Active Substance: IPRATROPIUM BROMIDE
     Indication: BRONCHITIS
     Dosage: 20 DRP, DAILY
     Route: 055
  2. FORASEQ [Suspect]
     Active Substance: BUDESONIDE\FORMOTEROL FUMARATE
     Indication: BRONCHITIS CHRONIC
     Dosage: 1 DF, BID (MORNING AND NIGHT)
     Route: 055
     Dates: start: 2007, end: 201303
  3. BEROTEC [Suspect]
     Active Substance: FENOTEROL HYDROBROMIDE
     Indication: BRONCHITIS
     Dosage: 5 DRP, DAILY
     Route: 055
  4. BRONDILAT//AMBROXOL ACEFYLLINATE [Suspect]
     Active Substance: AMBROXOL ACEFYLLINATE
     Indication: BRONCHIAL DISORDER
     Dosage: 10 ML, Q12H
     Route: 048
  5. BUDECORT AQUA [Concomitant]
     Active Substance: BUDESONIDE
     Indication: PRODUCTIVE COUGH
  6. BUDECORT AQUA [Concomitant]
     Active Substance: BUDESONIDE
     Indication: RHINITIS
     Dosage: 2 DF, DAILY (2 APPLICATIONS)
     Route: 055
  7. BUDECORT AQUA [Concomitant]
     Active Substance: BUDESONIDE
     Indication: BRONCHITIS
  8. FORASEQ [Suspect]
     Active Substance: BUDESONIDE\FORMOTEROL FUMARATE
     Dosage: 1 DF, BID
     Dates: start: 201405

REACTIONS (16)
  - Fibrosis [Unknown]
  - Sputum discoloured [Unknown]
  - Bacterial infection [Recovered/Resolved]
  - Bronchitis [Unknown]
  - Papilloma [Recovering/Resolving]
  - Metastasis [Unknown]
  - Breast haemorrhage [Recovering/Resolving]
  - Patient-device incompatibility [Recovering/Resolving]
  - Metastases to breast [Recovering/Resolving]
  - Productive cough [Unknown]
  - Breast cancer [Recovering/Resolving]
  - Procedural complication [Recovering/Resolving]
  - Palpitations [Unknown]
  - Apparent death [Recovering/Resolving]
  - Device related infection [Unknown]
  - Tremor [Unknown]

NARRATIVE: CASE EVENT DATE: 2009
